FAERS Safety Report 4574007-8 (Version None)
Quarter: 2005Q1

REPORT INFORMATION
  Report Type: 
  Country: None (occurrence: None)
  Receive Date: 20050204
  Receipt Date: 20050128
  Transmission Date: 20050727
  Serious: Yes (Death, Hospitalization)
  Sender: FDA-Public Use
  Company Number: 163-20785-04070335

PATIENT
  Age: 46 Year
  Sex: Male

DRUGS (19)
  1. THALOMID [Suspect]
     Indication: GRAFT VERSUS HOST DISEASE
     Dosage: 100 MG, QD, ORAL
     Route: 048
     Dates: start: 20030116, end: 20040101
  2. THALOMID [Suspect]
     Indication: HODGKIN'S DISEASE
     Dosage: 100 MG, QD, ORAL
     Route: 048
     Dates: start: 20030116, end: 20040101
  3. DEXAMETHASONE [Suspect]
     Indication: GRAFT VERSUS HOST DISEASE
  4. DEXAMETHASONE [Suspect]
     Indication: HODGKIN'S DISEASE
  5. CISPLATIN [Suspect]
     Indication: GRAFT VERSUS HOST DISEASE
  6. CISPLATIN [Suspect]
     Indication: HODGKIN'S DISEASE
  7. ADRIAMYCIN PFS [Suspect]
     Indication: GRAFT VERSUS HOST DISEASE
  8. CYCLOPHOSPHAMIDE [Suspect]
     Indication: GRAFT VERSUS HOST DISEASE
  9. CYCLOPHOSPHAMIDE [Suspect]
     Indication: HODGKIN'S DISEASE
  10. ETOPOSIDE [Suspect]
  11. TACROLIMUS (TACROLIMUS) [Concomitant]
  12. SOLU-MEDROL [Concomitant]
  13. TEQUIN [Concomitant]
  14. VORICONIZOLE (VORICONAZOLE) [Concomitant]
  15. INSULIN [Concomitant]
  16. CELLCEPT [Concomitant]
  17. CLOXCYCLINE (DOXYCYCLINE) [Concomitant]
  18. ENBREL [Concomitant]
  19. PROCRIT (ERYTHROPOIETIN) [Concomitant]

REACTIONS (16)
  - ABDOMINAL PAIN [None]
  - ADRENOCORTICAL INSUFFICIENCY ACUTE [None]
  - ADRENOCORTICAL INSUFFICIENCY CHRONIC [None]
  - ANAEMIA [None]
  - DEHYDRATION [None]
  - DIABETES MELLITUS [None]
  - DISEASE PROGRESSION [None]
  - DISEASE RECURRENCE [None]
  - ENTEROCOCCAL BACTERAEMIA [None]
  - GRAFT VERSUS HOST DISEASE [None]
  - HODGKIN'S DISEASE [None]
  - HYPERGLYCAEMIA [None]
  - INADEQUATE ANALGESIA [None]
  - MUSCULOSKELETAL PAIN [None]
  - SEPSIS [None]
  - THROMBOCYTOPENIA [None]
